FAERS Safety Report 17213130 (Version 1)
Quarter: 2019Q4

REPORT INFORMATION
  Report Type: Spontaneous
  Country: US (occurrence: US)
  Receive Date: 20191205
  Receipt Date: 20191205
  Transmission Date: 20200122
  Serious: Yes (Other)
  Sender: FDA-Public Use
  Company Number: None

PATIENT
  Sex: Male
  Weight: 58.97 kg

DRUGS (12)
  1. ZINC. [Concomitant]
     Active Substance: ZINC
  2. LUTEIN [Concomitant]
     Active Substance: LUTEIN
  3. VIT D [Concomitant]
     Active Substance: VITAMIN D NOS
  4. IPRATROPIUM NASAL SOLUTION NASAL SPRAY 42 MCG/SPRAY [Suspect]
     Active Substance: IPRATROPIUM BROMIDE
     Indication: NASAL CONGESTION
     Dosage: ?          QUANTITY:SPRAYS;OTHER FREQUENCY:3-4 A DAY;?
     Route: 045
     Dates: start: 20191111, end: 20191114
  5. TOPROAL [Concomitant]
  6. IPRATROPIUM NASAL SOLUTION NASAL SPRAY 42 MCG/SPRAY [Suspect]
     Active Substance: IPRATROPIUM BROMIDE
     Indication: NASOPHARYNGITIS
     Dosage: ?          QUANTITY:SPRAYS;OTHER FREQUENCY:3-4 A DAY;?
     Route: 045
     Dates: start: 20191111, end: 20191114
  7. MULTI VIT [Concomitant]
     Active Substance: VITAMINS
  8. COPPER [Concomitant]
     Active Substance: COPPER
  9. LOSARTAN. [Concomitant]
     Active Substance: LOSARTAN
  10. ELIQUIS [Concomitant]
     Active Substance: APIXABAN
  11. LIPITOR [Concomitant]
     Active Substance: ATORVASTATIN CALCIUM
  12. VITAMIN C [Concomitant]
     Active Substance: ASCORBIC ACID

REACTIONS (1)
  - Epistaxis [None]
